FAERS Safety Report 7690048-6 (Version None)
Quarter: 2011Q3

REPORT INFORMATION
  Report Type: 
  Country: None (occurrence: None)
  Receive Date: 20110818
  Receipt Date: 20110726
  Transmission Date: 20111222
  Serious: Yes (Death, Other)
  Sender: FDA-Public Use
  Company Number: US-JNJFOC-20110711630

PATIENT
  Sex: Male
  Weight: 3.29 kg

DRUGS (8)
  1. ROTAVIRUS VACCINE [Concomitant]
     Route: 065
  2. HEPATITIS B VACCINE [Concomitant]
     Route: 065
  3. POLIO VACCINE [Concomitant]
     Route: 065
  4. PNEUMOCOCCAL CONJUGATE VACCINE [Concomitant]
     Route: 065
  5. HEPATITIS B VACCINE [Concomitant]
     Route: 065
     Dates: start: 20081221
  6. HIBVAX [Concomitant]
     Route: 065
  7. TOPAMAX [Suspect]
     Indication: MATERNAL EXPOSURE DURING PREGNANCY
     Route: 064
  8. DTAP VACCINE [Concomitant]
     Route: 065

REACTIONS (4)
  - TESTICULAR HAEMORRHAGE [None]
  - DIARRHOEA [None]
  - DEATH [None]
  - DERMATITIS DIAPER [None]
